FAERS Safety Report 11371275 (Version 2)
Quarter: 2017Q1

REPORT INFORMATION
  Report Type: Spontaneous
  Country: US (occurrence: US)
  Receive Date: 20150812
  Receipt Date: 20170324
  Transmission Date: 20170428
  Serious: Yes (Other)
  Sender: FDA-Public Use
  Company Number: US-ELI_LILLY_AND_COMPANY-US201508002076

PATIENT
  Sex: Female

DRUGS (2)
  1. CYMBALTA [Suspect]
     Active Substance: DULOXETINE HYDROCHLORIDE
     Indication: DEPRESSION
     Dosage: UNK UNK, UNKNOWN
     Route: 048
  2. CYMBALTA [Suspect]
     Active Substance: DULOXETINE HYDROCHLORIDE
     Indication: PAIN

REACTIONS (14)
  - Vertigo [Unknown]
  - Headache [Unknown]
  - Dysphoria [Unknown]
  - Nausea [Unknown]
  - Fatigue [Unknown]
  - Visual impairment [Unknown]
  - Road traffic accident [Unknown]
  - Dizziness [Unknown]
  - Paraesthesia [Unknown]
  - Loss of consciousness [Unknown]
  - Injury [Unknown]
  - Anxiety [Unknown]
  - Lethargy [Unknown]
  - Drug withdrawal syndrome [Unknown]
